FAERS Safety Report 8534100-1 (Version None)
Quarter: 2012Q3

REPORT INFORMATION
  Report Type: 
  Country: None (occurrence: None)
  Receive Date: 20120724
  Receipt Date: 20120719
  Transmission Date: 20120928
  Serious: Yes (Other)
  Sender: FDA-Public Use
  Company Number: AR-ROCHE-1091268

PATIENT
  Sex: Female

DRUGS (2)
  1. LUCENTIS [Suspect]
     Indication: GLAUCOMA
     Route: 050
     Dates: start: 20090101
  2. LUCENTIS [Suspect]
     Route: 050
     Dates: start: 20100101

REACTIONS (1)
  - VASCULAR RUPTURE [None]
